FAERS Safety Report 16668041 (Version 1)
Quarter: 2019Q3

REPORT INFORMATION
  Report Type: Spontaneous
  Country: None (occurrence: CL)
  Receive Date: 20190805
  Receipt Date: 20190805
  Transmission Date: 20191004
  Serious: Yes (Other)
  Sender: FDA-Public Use
  Company Number: CL-POPULATION COUNCIL, INC.-2072753

PATIENT
  Age: 17 Year
  Sex: Female

DRUGS (1)
  1. JADELLE [Suspect]
     Active Substance: LEVONORGESTREL
     Route: 059
     Dates: start: 20190722

REACTIONS (5)
  - Hypoaesthesia oral [Unknown]
  - Implant site bruising [None]
  - Hypoaesthesia [None]
  - Implant site infection [None]
  - Implant site oedema [Unknown]

NARRATIVE: CASE EVENT DATE: 201907
